FAERS Safety Report 4648748-8 (Version None)
Quarter: 2005Q2

REPORT INFORMATION
  Report Type: 
  Country: None (occurrence: None)
  Receive Date: 20050427
  Receipt Date: 20050415
  Transmission Date: 20051028
  Serious: Yes (Hospitalization)
  Sender: FDA-Public Use
  Company Number: 213864

PATIENT
  Age: 63 Year
  Sex: Female
  Weight: 70 kg

DRUGS (3)
  1. AVASTIN [Suspect]
     Indication: NEUROENDOCRINE CARCINOMA
     Dosage: 5 MG/KG, DAYS 1+15, INTRAVENOUS
     Route: 042
     Dates: start: 20041130, end: 20050308
  2. TEMOZOLOMIDE (TEMOZOLOMIDE) [Suspect]
     Indication: NEUROENDOCRINE CARCINOMA
     Dosage: 150 MG/M2, QD, ORAL
     Route: 048
     Dates: start: 20041130, end: 20050314
  3. PREVACID [Suspect]
     Indication: DRUG USE FOR UNKNOWN INDICATION

REACTIONS (21)
  - ANOREXIA [None]
  - DECREASED INTEREST [None]
  - DEHYDRATION [None]
  - DEPRESSION [None]
  - DISTURBANCE IN ATTENTION [None]
  - EMPHYSEMA [None]
  - HAEMATOCRIT DECREASED [None]
  - HAEMOGLOBIN DECREASED [None]
  - HYPERSOMNIA [None]
  - HYPOMAGNESAEMIA [None]
  - INTERSTITIAL LUNG DISEASE [None]
  - LUNG CONSOLIDATION [None]
  - LYMPHOCYTE PERCENTAGE DECREASED [None]
  - NEUTROPHIL COUNT DECREASED [None]
  - PLATELET COUNT DECREASED [None]
  - PLEURAL EFFUSION [None]
  - PULMONARY OEDEMA [None]
  - RED BLOOD CELL COUNT DECREASED [None]
  - REFUSAL OF TREATMENT BY PATIENT [None]
  - WHITE BLOOD CELL COUNT DECREASED [None]
  - WHITE BLOOD CELL COUNT INCREASED [None]
